FAERS Safety Report 11620821 (Version 2)
Quarter: 2015Q4

REPORT INFORMATION
  Report Type: Spontaneous
  Country: US (occurrence: US)
  Receive Date: 20151012
  Receipt Date: 20151017
  Transmission Date: 20160304
  Serious: No
  Sender: FDA-Public Use
  Company Number: US-BRISTOL-MYERS SQUIBB COMPANY-BMS-2015-067841

PATIENT
  Sex: Female

DRUGS (2)
  1. SPRYCEL [Suspect]
     Active Substance: DASATINIB
     Indication: CHRONIC MYELOID LEUKAEMIA
     Dosage: 100 MG, QD
     Route: 048
     Dates: start: 201408
  2. SPRYCEL [Suspect]
     Active Substance: DASATINIB
     Dosage: 100 MG, QD
     Route: 048
     Dates: start: 20140925

REACTIONS (7)
  - Rhinorrhoea [Unknown]
  - Sneezing [Unknown]
  - Nasopharyngitis [Unknown]
  - Pain [Unknown]
  - Headache [Unknown]
  - Nasal congestion [Unknown]
  - Oropharyngeal pain [Unknown]
